FAERS Safety Report 25335156 (Version 1)
Quarter: 2025Q2

REPORT INFORMATION
  Report Type: Spontaneous
  Country: US (occurrence: US)
  Receive Date: 20250520
  Receipt Date: 20250520
  Transmission Date: 20250716
  Serious: No
  Sender: CURIUM PHARMACEUTICALS
  Company Number: US-CURIUM-2021000914

PATIENT
  Sex: Female

DRUGS (1)
  1. DETECTNET [Suspect]
     Active Substance: COPPER OXODOTREOTIDE CU-64
     Indication: Imaging procedure
     Route: 042
     Dates: start: 20211208, end: 20211208

REACTIONS (4)
  - Flushing [Recovered/Resolved]
  - Palpitations [Recovered/Resolved]
  - Nausea [Recovered/Resolved]
  - Vomiting [Recovered/Resolved]

NARRATIVE: CASE EVENT DATE: 20211208
